FAERS Safety Report 12722074 (Version 1)
Quarter: 2016Q3

REPORT INFORMATION
  Report Type: Spontaneous
  Country: FR (occurrence: FR)
  Receive Date: 20160907
  Receipt Date: 20160907
  Transmission Date: 20161109
  Serious: Yes (Other)
  Sender: FDA-Public Use
  Company Number: FR-TEVA-689178ROM

PATIENT
  Age: 40 Year
  Sex: Female
  Weight: 97 kg

DRUGS (5)
  1. CYCLOPHOSPHAMIDE. [Concomitant]
     Active Substance: CYCLOPHOSPHAMIDE
     Indication: T-CELL LYMPHOMA
     Dosage: CHOEP PROTOCOL (CYCLOPHOSPHAMIDE, VINCRISTINE, DOXORUBICINE, PREDNISONE)
  2. VINCRISTINE [Concomitant]
     Active Substance: VINCRISTINE
     Indication: T-CELL LYMPHOMA
     Dosage: CHOEP PROTOCOL (CYCLOPHOSPHAMIDE, VINCRISTINE, DOXORUBICINE, PREDNISONE)
  3. DOXORUBICINE [Concomitant]
     Active Substance: DOXORUBICIN
     Indication: T-CELL LYMPHOMA
     Dosage: CHOEP PROTOCOL (CYCLOPHOSPHAMIDE, VINCRISTINE, DOXORUBICINE, PREDNISONE), DAY 1
     Dates: start: 20160503, end: 20160503
  4. PREDNISONE. [Concomitant]
     Active Substance: PREDNISONE
     Indication: T-CELL LYMPHOMA
     Dosage: CHOEP PROTOCOL (CYCLOPHOSPHAMIDE, VINCRISTINE, DOXORUBICINE, PREDNISONE)
  5. ETOPOSIDE TEVA 200 MG [Suspect]
     Active Substance: ETOPOSIDE
     Indication: T-CELL LYMPHOMA
     Dosage: CHOEP PROTOCOL (CYCLOPHOSPHAMIDE, VINCRISTINE, DOXORUBICINE, PREDNISONE), DAY 1
     Route: 041
     Dates: start: 20160503, end: 20160503

REACTIONS (3)
  - Bronchospasm paradoxical [Recovered/Resolved]
  - Pyrexia [Recovered/Resolved]
  - Respiratory distress [Recovered/Resolved]

NARRATIVE: CASE EVENT DATE: 20160503
